FAERS Safety Report 9867023 (Version 1)
Quarter: 2014Q1

REPORT INFORMATION
  Report Type: Spontaneous
  Country: US (occurrence: None)
  Receive Date: 20140203
  Receipt Date: 20140203
  Transmission Date: 20141002
  Serious: Yes (Congenital Anomaly, Other)
  Sender: FDA-Public Use
  Company Number: None

PATIENT
  Age: 28 Year
  Sex: Female
  Weight: 74.84 kg

DRUGS (1)
  1. NEXT CHOICE [Suspect]
     Indication: POST COITAL CONTRACEPTION
     Dosage: TAKEN BY MOUTH
     Dates: start: 20130413, end: 20130702

REACTIONS (3)
  - Pregnancy after post coital contraception [None]
  - Benign hydatidiform mole [None]
  - Maternal exposure before pregnancy [None]
